FAERS Safety Report 10875359 (Version 1)
Quarter: 2015Q1

REPORT INFORMATION
  Report Type: Spontaneous
  Country: US (occurrence: US)
  Receive Date: 20150227
  Receipt Date: 20150227
  Transmission Date: 20150721
  Serious: Yes (Hospitalization, Other)
  Sender: FDA-Public Use
  Company Number: US-APOTEX-2015AP007033

PATIENT
  Sex: Male

DRUGS (1)
  1. PAROXETINE HYDROCHLORIDE. [Suspect]
     Active Substance: PAROXETINE HYDROCHLORIDE
     Indication: DEPRESSION
     Dosage: 20 MG, QD
     Route: 064

REACTIONS (8)
  - Developmental delay [Unknown]
  - Foetal exposure during pregnancy [Unknown]
  - Head deformity [Unknown]
  - Speech disorder developmental [Unknown]
  - Microcephaly [Unknown]
  - Dyspnoea [Unknown]
  - Heart rate irregular [Unknown]
  - Feeding disorder [Unknown]
